FAERS Safety Report 26194476 (Version 1)
Quarter: 2025Q4

REPORT INFORMATION
  Report Type: Spontaneous
  Country: CN (occurrence: CN)
  Receive Date: 20251224
  Receipt Date: 20251224
  Transmission Date: 20260118
  Serious: Yes (Hospitalization, Other)
  Sender: BAXTER
  Company Number: None

PATIENT
  Age: 49 Year
  Sex: Male

DRUGS (3)
  1. CYCLOPHOSPHAMIDE [Suspect]
     Active Substance: CYCLOPHOSPHAMIDE
     Indication: Peripheral T-cell lymphoma unspecified
     Dosage: 1.35 G, QD (1.35 G/TIME 1 TIME/DAY)
     Route: 041
     Dates: start: 20251011, end: 20251011
  2. ETOPOSIDE [Suspect]
     Active Substance: ETOPOSIDE
     Indication: Peripheral T-cell lymphoma unspecified
     Dosage: 0.1 G, QD (0.1 G/TIME 1 TIME/DAY)
     Route: 041
     Dates: start: 20251010, end: 20251010
  3. PIRARUBICIN HYDROCHLORIDE [Suspect]
     Active Substance: PIRARUBICIN HYDROCHLORIDE
     Indication: Peripheral T-cell lymphoma unspecified
     Dosage: 90 MG, QD (90 MG/TIME 1 TIME/DAY)
     Route: 041
     Dates: start: 20251011, end: 20251011

REACTIONS (11)
  - Soft tissue infection [Recovering/Resolving]
  - Pyrexia [Recovered/Resolved]
  - Hyperpyrexia [Recovering/Resolving]
  - Lip swelling [Recovering/Resolving]
  - Red blood cell sedimentation rate increased [Recovering/Resolving]
  - Swelling face [Recovering/Resolving]
  - Myelosuppression [Recovering/Resolving]
  - Pancytopenia [Recovering/Resolving]
  - Granulocytopenia [Recovering/Resolving]
  - Pruritus [Recovering/Resolving]
  - Cough [Recovering/Resolving]

NARRATIVE: CASE EVENT DATE: 20251019
